FAERS Safety Report 23782659 (Version 1)
Quarter: 2024Q2

REPORT INFORMATION
  Report Type: Spontaneous
  Country: US (occurrence: None)
  Receive Date: 20240424
  Receipt Date: 20240424
  Transmission Date: 20240716
  Serious: Yes (Disabling, Other)
  Sender: FDA-Public Use
  Company Number: None

PATIENT
  Age: 50 Year
  Sex: Female
  Weight: 51.75 kg

DRUGS (8)
  1. DOTAREM [Suspect]
     Active Substance: GADOTERATE MEGLUMINE
     Indication: Magnetic resonance imaging
     Dosage: 10 ML PER MRI ORDERS INTRAVENOUS
     Route: 042
     Dates: start: 20230612, end: 20240131
  2. DOTAREM [Suspect]
     Active Substance: GADOTERATE MEGLUMINE
     Indication: Renal scan
  3. DOTAREM [Suspect]
     Active Substance: GADOTERATE MEGLUMINE
     Indication: Magnetic resonance imaging head
  4. LENVIMA [Concomitant]
     Active Substance: LENVATINIB
  5. PREDNISONE [Concomitant]
     Active Substance: PREDNISONE
  6. APPLE CIDER VINAGER [Concomitant]
  7. METHYLATED FOLIC ACID [Concomitant]
  8. VITAMIN D [Concomitant]
     Active Substance: VITAMIN D NOS

REACTIONS (25)
  - Chest discomfort [None]
  - Dyspnoea [None]
  - Histamine level increased [None]
  - Tryptase increased [None]
  - Therapy interrupted [None]
  - Gastrointestinal disorder [None]
  - Fibrosis [None]
  - Eosinophilia [None]
  - Galectin-3 increased [None]
  - Joint contracture [None]
  - Eosinophilic fasciitis [None]
  - Tenosynovitis [None]
  - Hepatic pain [None]
  - Gingivitis [None]
  - Drug hypersensitivity [None]
  - Gadolinium deposition disease [None]
  - Blood pH abnormal [None]
  - Blood pressure increased [None]
  - Heart rate increased [None]
  - Fibrin D dimer increased [None]
  - Drug level increased [None]
  - Drug screen positive [None]
  - Fat tissue decreased [None]
  - Hair disorder [None]
  - Skin fibrosis [None]

NARRATIVE: CASE EVENT DATE: 20240131
